FAERS Safety Report 9564217 (Version 4)
Quarter: 2013Q4

REPORT INFORMATION
  Report Type: Report from Study
  Country: AU (occurrence: AU)
  Receive Date: 20130930
  Receipt Date: 20131119
  Transmission Date: 20140711
  Serious: Yes (Other)
  Sender: FDA-Public Use
  Company Number: AU-ROCHE-1282708

PATIENT
  Age: 42 Year
  Sex: Female

DRUGS (3)
  1. ACTEMRA [Suspect]
     Indication: RHEUMATOID ARTHRITIS
     Dosage: MONTHLY
     Route: 042
     Dates: start: 20130927
  2. ACTEMRA [Suspect]
     Dosage: APPROX 16 MG
     Route: 042
  3. MAXOLON [Concomitant]
     Indication: NAUSEA
     Route: 048
     Dates: start: 20131011

REACTIONS (6)
  - Pain [Recovering/Resolving]
  - Dysgeusia [Recovering/Resolving]
  - Dizziness [Unknown]
  - Vision blurred [Unknown]
  - Blood pressure decreased [Unknown]
  - Nausea [Recovering/Resolving]
